FAERS Safety Report 7534672-X (Version None)
Quarter: 2011Q2

REPORT INFORMATION
  Report Type: 
  Country: None (occurrence: None)
  Receive Date: 20110609
  Receipt Date: 20110412
  Transmission Date: 20111010
  Serious: Yes (Other)
  Sender: FDA-Public Use
  Company Number: PHHY2011BR40363

PATIENT
  Age: 78 Year
  Sex: Male

DRUGS (3)
  1. RAVOTRIL [Concomitant]
  2. SERTRALINE HYDROCHLORIDE [Concomitant]
  3. RIVASTIGMINE [Suspect]
     Indication: DEMENTIA ALZHEIMER'S TYPE

REACTIONS (5)
  - CEREBRAL ISCHAEMIA [None]
  - FEELING ABNORMAL [None]
  - DEPRESSED MOOD [None]
  - DEMENTIA [None]
  - MEMORY IMPAIRMENT [None]
